FAERS Safety Report 12647440 (Version 1)
Quarter: 2016Q3

REPORT INFORMATION
  Report Type: Spontaneous
  Country: HR (occurrence: HR)
  Receive Date: 20160812
  Receipt Date: 20160812
  Transmission Date: 20161109
  Serious: Yes (Life-Threatening, Hospitalization)
  Sender: FDA-Public Use
  Company Number: HR-TEVA-681983ACC

PATIENT
  Age: 95 Year
  Sex: Female

DRUGS (6)
  1. ZALDIAR [Suspect]
     Active Substance: ACETAMINOPHEN\TRAMADOL HYDROCHLORIDE
     Indication: LIGAMENT SPRAIN
     Route: 048
     Dates: start: 20160606, end: 20160708
  2. LANITOP [Concomitant]
     Active Substance: METILDIGOXIN
     Indication: ISCHAEMIC CARDIOMYOPATHY
     Dosage: .05 MILLIGRAM DAILY;
     Route: 048
  3. PRAZINE [Concomitant]
     Active Substance: PROMAZINE HYDROCHLORIDE
     Indication: DEMENTIA
     Dosage: 75 MILLIGRAM DAILY;
     Route: 048
     Dates: start: 201606
  4. PRADAXA [Suspect]
     Active Substance: DABIGATRAN ETEXILATE MESYLATE
     Indication: ATRIAL FIBRILLATION
     Dosage: 220 MILLIGRAM DAILY;
     Route: 048
     Dates: end: 20160708
  5. VOLTAREN [Suspect]
     Active Substance: DICLOFENAC SODIUM
     Indication: LIGAMENT SPRAIN
     Route: 065
     Dates: start: 20160706, end: 20160708
  6. FURSEMID [Concomitant]
     Active Substance: FUROSEMIDE
     Indication: ISCHAEMIC CARDIOMYOPATHY
     Route: 048

REACTIONS (5)
  - Chronic kidney disease [Recovering/Resolving]
  - Intestinal haemorrhage [Recovering/Resolving]
  - Normochromic normocytic anaemia [Recovering/Resolving]
  - Overdose [Recovering/Resolving]
  - Hyperglycaemia [Recovering/Resolving]

NARRATIVE: CASE EVENT DATE: 20160709
